FAERS Safety Report 23581391 (Version 2)
Quarter: 2024Q1

REPORT INFORMATION
  Report Type: Spontaneous
  Country: US (occurrence: US)
  Receive Date: 20240229
  Receipt Date: 20240320
  Transmission Date: 20240410
  Serious: Yes (Other)
  Sender: FDA-Public Use
  Company Number: US-ALEMBIC PHARMACUETICALS LIMITED-2024SCAL000132

PATIENT

DRUGS (2)
  1. ASENAPINE [Suspect]
     Active Substance: ASENAPINE
     Indication: Acute psychosis
     Dosage: 2.5 MILLIGRAM (OVER 8 MONTHS)
     Route: 060
  2. ASENAPINE [Suspect]
     Active Substance: ASENAPINE
     Dosage: 2.5 MILLIGRAM EVERY OTHER DAY
     Route: 060

REACTIONS (6)
  - Tardive dyskinesia [Unknown]
  - Muscle twitching [Unknown]
  - Tongue movement disturbance [Unknown]
  - Drug withdrawal syndrome [Unknown]
  - Insomnia [Unknown]
  - Anxiety [Unknown]
